FAERS Safety Report 24715241 (Version 1)
Quarter: 2024Q4

REPORT INFORMATION
  Report Type: Spontaneous
  Country: TR (occurrence: TR)
  Receive Date: 20241210
  Receipt Date: 20241210
  Transmission Date: 20250114
  Serious: Yes (Hospitalization, Other)
  Sender: EPIC PHARM
  Company Number: TR-EPICPHARMA-TR-2024EPCLIT01522

PATIENT
  Age: 74 Year
  Sex: Female

DRUGS (5)
  1. ZOLEDRONIC ACID [Suspect]
     Active Substance: ZOLEDRONIC ACID
     Indication: Osteoporosis
     Route: 042
     Dates: start: 20230310
  2. PREDNISOLONE [Concomitant]
     Active Substance: PREDNISOLONE
     Indication: Spondyloarthropathy
     Route: 065
     Dates: start: 202110
  3. CALCIUM [Concomitant]
     Active Substance: CALCIUM
     Route: 065
  4. CHOLECALCIFEROL [Concomitant]
     Active Substance: CHOLECALCIFEROL
     Route: 065
  5. SODIUM CHLORIDE [Concomitant]
     Active Substance: SODIUM CHLORIDE
     Indication: Product used for unknown indication
     Route: 042

REACTIONS (2)
  - Pancreatitis acute [Recovered/Resolved]
  - Product use in unapproved indication [Unknown]
